FAERS Safety Report 7402488-0 (Version None)
Quarter: 2011Q2

REPORT INFORMATION
  Report Type: 
  Country: None (occurrence: None)
  Receive Date: 20110408
  Receipt Date: 20110401
  Transmission Date: 20111010
  Serious: Yes (Life-Threatening, Other)
  Sender: FDA-Public Use
  Company Number: PHHY2011FR27221

PATIENT
  Sex: Male

DRUGS (10)
  1. EUCREAS [Suspect]
     Dosage: 1 DF (1000 MG OF METFORMIN AND 50 MG OF VILDAGLIPTIN), BID
  2. PLAVIX [Suspect]
     Dosage: 1 DF, QD
     Route: 048
  3. MIFLASONE [Suspect]
     Dosage: 1 DF, BID
  4. MEDIATOR [Suspect]
     Indication: DIABETES MELLITUS
     Dosage: 1 DF, TID
     Route: 048
     Dates: start: 20000101, end: 20090101
  5. SPIRIVA [Suspect]
     Dosage: 18 UG, QD
  6. FORADIL [Suspect]
     Dosage: 1 DF, BID
  7. DIAMOX [Suspect]
     Dosage: 1 DF, BID
  8. DIFFU K [Suspect]
     Dosage: 1 DF, QD
     Route: 048
  9. PRAVASTATIN [Suspect]
     Dosage: 40 MG, QD
     Route: 048
  10. IRBESARTAN [Suspect]
     Dosage: 150 MG, QD
     Route: 048

REACTIONS (2)
  - PULMONARY ARTERIAL HYPERTENSION [None]
  - DYSPNOEA EXERTIONAL [None]
